FAERS Safety Report 17681467 (Version 2)
Quarter: 2020Q2

REPORT INFORMATION
  Report Type: Spontaneous
  Country: US (occurrence: US)
  Receive Date: 20200417
  Receipt Date: 20200417
  Transmission Date: 20200714
  Serious: No
  Sender: FDA-Public Use
  Company Number: US-TEVA-2020-US-1223489

PATIENT
  Sex: Female

DRUGS (2)
  1. PROAIR HFA [Suspect]
     Active Substance: ALBUTEROL SULFATE
     Indication: ASTHMA
     Route: 065
  2. PROAIR HFA [Suspect]
     Active Substance: ALBUTEROL SULFATE
     Indication: DYSPNOEA

REACTIONS (2)
  - Drug ineffective [Unknown]
  - Maternal exposure during pregnancy [Unknown]
